FAERS Safety Report 12543452 (Version 1)
Quarter: 2016Q3

REPORT INFORMATION
  Report Type: Spontaneous
  Country: US (occurrence: None)
  Receive Date: 20160708
  Receipt Date: 20160708
  Transmission Date: 20161109
  Serious: Yes (Hospitalization)
  Sender: FDA-Public Use
  Company Number: None

PATIENT
  Age: 64 Year
  Sex: Female
  Weight: 45.4 kg

DRUGS (22)
  1. EFFEXOR [Concomitant]
     Active Substance: VENLAFAXINE HYDROCHLORIDE
  2. XANAX [Concomitant]
     Active Substance: ALPRAZOLAM
  3. ELIQUIS [Suspect]
     Active Substance: APIXABAN
     Indication: THROMBOSIS
     Route: 048
  4. ELIQUIS [Concomitant]
     Active Substance: APIXABAN
  5. CYMBALTA [Concomitant]
     Active Substance: DULOXETINE HYDROCHLORIDE
  6. RANEXA [Concomitant]
     Active Substance: RANOLAZINE
  7. TUDORZA PRESSAIR [Concomitant]
     Active Substance: ACLIDINIUM BROMIDE
  8. LIPITOR [Concomitant]
     Active Substance: ATORVASTATIN CALCIUM
  9. LASIX [Concomitant]
     Active Substance: FUROSEMIDE
  10. PROMETHAZINE (PHENERGAN) [Concomitant]
  11. SUCRALFATE (CARAFATE) [Concomitant]
  12. BREO ELLIPTA [Concomitant]
     Active Substance: FLUTICASONE FUROATE\VILANTEROL TRIFENATATE
  13. ENSURE [Concomitant]
     Active Substance: AMINO ACIDS\DEXTROSE\ELECTROLYTES NOS\SOYBEAN OIL\VITAMINS
  14. TRIAMCINOLONE (KENALOG) [Concomitant]
  15. PANTOPRAZOLE (PROTONIX) [Concomitant]
  16. ERGOCALCIFEROL. [Concomitant]
     Active Substance: ERGOCALCIFEROL
  17. LUBIPROSTONE (AMITIZA) [Concomitant]
  18. MIDODRINE (PROAMATINE) [Concomitant]
  19. DOCUSATE SODIUM (COLACE, DULCOLAX) [Concomitant]
  20. ELIQUIS [Suspect]
     Active Substance: APIXABAN
     Indication: CEREBROVASCULAR ACCIDENT
     Route: 048
  21. NORCO [Concomitant]
     Active Substance: ACETAMINOPHEN\HYDROCODONE BITARTRATE
  22. ASPIRIN LOW DOSE [Concomitant]
     Active Substance: ASPIRIN

REACTIONS (3)
  - Lower gastrointestinal haemorrhage [None]
  - Haemoglobin decreased [None]
  - Rectal haemorrhage [None]

NARRATIVE: CASE EVENT DATE: 20160602
